FAERS Safety Report 18254278 (Version 1)
Quarter: 2020Q3

REPORT INFORMATION
  Report Type: Report from Study
  Country: None (occurrence: FR)
  Receive Date: 20200911
  Receipt Date: 20200911
  Transmission Date: 20201103
  Serious: Yes (Hospitalization)
  Sender: FDA-Public Use
  Company Number: FR-ABBVIE-20K-056-3555779-00

PATIENT
  Age: 24 Year
  Sex: Female
  Weight: 75 kg

DRUGS (6)
  1. IMUREL [Concomitant]
     Active Substance: AZATHIOPRINE SODIUM
     Indication: COLITIS ULCERATIVE
     Route: 048
     Dates: start: 20171110
  2. CORTANCYL [Concomitant]
     Active Substance: PREDNISONE
     Indication: COLITIS ULCERATIVE
     Route: 048
     Dates: start: 20181226
  3. DELURSAN [Concomitant]
     Active Substance: URSODIOL
     Indication: CHOLANGITIS SCLEROSING
     Route: 048
     Dates: start: 20161219
  4. ADALIMUMAB [Suspect]
     Active Substance: ADALIMUMAB
     Indication: COLITIS ULCERATIVE
     Route: 058
     Dates: start: 20190115, end: 20190115
  5. ADALIMUMAB [Suspect]
     Active Substance: ADALIMUMAB
     Route: 058
     Dates: start: 2019, end: 2019
  6. ADALIMUMAB [Suspect]
     Active Substance: ADALIMUMAB
     Route: 058
     Dates: start: 20190130, end: 2019

REACTIONS (3)
  - Proctocolectomy [Recovered/Resolved]
  - Intestinal anastomosis [Recovered/Resolved]
  - Enterostomy closure [Recovered/Resolved]

NARRATIVE: CASE EVENT DATE: 20200114
